FAERS Safety Report 4320077-1 (Version None)
Quarter: 2004Q1

REPORT INFORMATION
  Report Type: 
  Country: None (occurrence: None)
  Receive Date: 20040315
  Receipt Date: 20040205
  Transmission Date: 20041129
  Serious: No
  Sender: FDA-Public Use
  Company Number: 2004197763US

PATIENT

DRUGS (1)
  1. BEXTRA [Suspect]

REACTIONS (1)
  - OESOPHAGEAL SPASM [None]
